FAERS Safety Report 9392289 (Version 2)
Quarter: 2013Q3

REPORT INFORMATION
  Report Type: Spontaneous
  Country: US (occurrence: US)
  Receive Date: 20130710
  Receipt Date: 20130719
  Transmission Date: 20140515
  Serious: Yes (Death)
  Sender: FDA-Public Use
  Company Number: US-JNJFOC-20130620775

PATIENT
  Sex: Female

DRUGS (3)
  1. NEOSPORIN ORIGINAL OINTMENT UNSPECIFIED [Suspect]
     Indication: RASH
     Route: 061
  2. NEOSPORIN ORIGINAL OINTMENT UNSPECIFIED [Suspect]
     Indication: BITE
     Route: 061
  3. NEOSPORIN ORIGINAL OINTMENT UNSPECIFIED [Suspect]
     Indication: LACERATION
     Route: 061

REACTIONS (2)
  - Off label use [Unknown]
  - Therapeutic response unexpected [Unknown]
